FAERS Safety Report 12809214 (Version 1)
Quarter: 2016Q4

REPORT INFORMATION
  Report Type: Spontaneous
  Country: FR (occurrence: FR)
  Receive Date: 20161004
  Receipt Date: 20161004
  Transmission Date: 20170207
  Serious: Yes (Hospitalization, Other)
  Sender: FDA-Public Use
  Company Number: FR-009507513-1610FRA000703

PATIENT
  Age: 46 Year
  Sex: Male

DRUGS (10)
  1. PIPERACILLIN SODIUM (+) SODIUM CHLORIDE (+) TAZOBACTAM SODIUM [Suspect]
     Active Substance: PIPERACILLIN SODIUM\TAZOBACTAM SODIUM
     Indication: BACTERAEMIA
     Dosage: 4 G, TID
     Route: 042
     Dates: start: 20160815, end: 20160901
  2. LEPTICUR [Concomitant]
     Active Substance: TROPATEPINE HYDROCHLORIDE
  3. LYRICA [Concomitant]
     Active Substance: PREGABALIN
  4. GABAPENTIN. [Concomitant]
     Active Substance: GABAPENTIN
  5. LEVOTHYROX [Concomitant]
     Active Substance: LEVOTHYROXINE
  6. RIMACTAN [Suspect]
     Active Substance: RIFAMPIN
     Indication: BACTERAEMIA
     Dosage: 300 MG, BID
     Route: 048
     Dates: start: 20160824, end: 20160901
  7. CUBICIN [Suspect]
     Active Substance: DAPTOMYCIN
     Indication: BACTERAEMIA
     Dosage: UNK
     Route: 042
     Dates: start: 20160818, end: 20160901
  8. PERFALGAN [Concomitant]
     Active Substance: ACETAMINOPHEN
  9. ACTISKENAN [Concomitant]
     Active Substance: MORPHINE SULFATE
  10. ATARAX [Concomitant]
     Active Substance: HYDROXYZINE\HYDROXYZINE HYDROCHLORIDE

REACTIONS (2)
  - Pyrexia [Recovered/Resolved]
  - Hepatitis [Recovering/Resolving]

NARRATIVE: CASE EVENT DATE: 2016
